FAERS Safety Report 5653026-4 (Version None)
Quarter: 2008Q1

REPORT INFORMATION
  Report Type: 
  Country: None (occurrence: None)
  Receive Date: 20080306
  Receipt Date: 20080225
  Transmission Date: 20080703
  Serious: Yes (Other)
  Sender: FDA-Public Use
  Company Number: PHHY2008CA02305

PATIENT
  Age: 53 Year

DRUGS (7)
  1. DIOVAN [Suspect]
     Indication: HYPERTENSION
     Dosage: 80 MG, QD
  2. DIOVAN [Suspect]
     Dosage: 80 MG, QD
  3. CAL D [Concomitant]
     Dosage: UNK, BID
  4. VAGIFEM [Concomitant]
     Dosage: UNK, QW2
  5. ZOMIG [Concomitant]
  6. ELAVIL [Concomitant]
     Dosage: 25 UNK, QD
  7. BETA BLOCKING AGENTS [Concomitant]
     Indication: HYPERTENSION

REACTIONS (3)
  - BLOOD PRESSURE DIASTOLIC INCREASED [None]
  - PALPITATIONS [None]
  - TACHYCARDIA [None]
